FAERS Safety Report 7002565-2 (Version None)
Quarter: 2010Q3

REPORT INFORMATION
  Report Type: 
  Country: None (occurrence: None)
  Receive Date: 20100920
  Receipt Date: 20090928
  Transmission Date: 20110219
  Serious: No
  Sender: FDA-Public Use
  Company Number: US-ASTRAZENECA-2009UW06305

PATIENT
  Age: 60 Year
  Sex: Female
  Weight: 108.9 kg

DRUGS (10)
  1. SEROQUEL [Suspect]
     Indication: BIPOLAR DISORDER
     Route: 048
     Dates: start: 20070101
  2. ZYPREXA [Concomitant]
     Route: 048
  3. LORAZEPAM [Concomitant]
  4. ZOLOFT [Concomitant]
  5. NORVASC [Concomitant]
     Route: 048
  6. POTASSIUM [Concomitant]
     Route: 048
  7. PRILOSEC [Concomitant]
     Route: 048
  8. ATENOLOL [Concomitant]
     Route: 048
  9. HYDROCHLOROTHIAZIDE [Concomitant]
     Route: 048
  10. PRAVASTATIN [Concomitant]
     Route: 048

REACTIONS (4)
  - ARTHRALGIA [None]
  - PAIN IN EXTREMITY [None]
  - THERAPEUTIC RESPONSE UNEXPECTED [None]
  - WEIGHT INCREASED [None]
